FAERS Safety Report 18376786 (Version 1)
Quarter: 2020Q4

REPORT INFORMATION
  Report Type: Spontaneous
  Country: US (occurrence: US)
  Receive Date: 20201013
  Receipt Date: 20201013
  Transmission Date: 20210114
  Serious: No
  Sender: FDA-Public Use
  Company Number: US-TEVA-2020-US-1837105

PATIENT
  Age: 38 Year
  Sex: Female

DRUGS (1)
  1. NIZATIDINE TEVA [Suspect]
     Active Substance: NIZATIDINE
     Route: 065

REACTIONS (2)
  - Gastrooesophageal reflux disease [Unknown]
  - Feeding disorder [Unknown]
